FAERS Safety Report 6413725-3 (Version None)
Quarter: 2009Q4

REPORT INFORMATION
  Report Type: 
  Country: None (occurrence: None)
  Receive Date: 20091023
  Receipt Date: 20091023
  Transmission Date: 20100525
  Serious: Yes (Hospitalization)
  Sender: FDA-Public Use
  Company Number: None

PATIENT
  Age: 46 Year
  Sex: Male
  Weight: 104.2 kg

DRUGS (1)
  1. METHIMAZOLE [Suspect]
     Indication: HYPERTHYROIDISM
     Dosage: 20MG BY MOUTH TWICE DAILY
     Dates: start: 20090923

REACTIONS (4)
  - BURNING SENSATION [None]
  - HYPERSENSITIVITY [None]
  - PAIN [None]
  - SKIN IRRITATION [None]
